FAERS Safety Report 9279217 (Version 3)
Quarter: 2013Q2

REPORT INFORMATION
  Report Type: Spontaneous
  Country: IT (occurrence: IT)
  Receive Date: 20130508
  Receipt Date: 20130617
  Transmission Date: 20140414
  Serious: Yes (Hospitalization)
  Sender: FDA-Public Use
  Company Number: IT-UCBSA-085177

PATIENT
  Age: 72 Year
  Sex: Male

DRUGS (3)
  1. NEUPRO [Suspect]
     Indication: PARKINSON^S DISEASE
     Route: 062
     Dates: start: 20130422, end: 20130428
  2. NEUPRO [Suspect]
     Indication: PARKINSON^S DISEASE
     Dosage: 2 MG
     Route: 062
  3. MADOPAR [Concomitant]
     Indication: PARKINSON^S DISEASE
     Dosage: 200 MG+50 MG DIVISIBLE TABLETS AT A DOSE OF 1.5 DF
     Route: 048

REACTIONS (2)
  - Blood pressure increased [Recovering/Resolving]
  - Vertigo [Recovering/Resolving]
